FAERS Safety Report 18152444 (Version 3)
Quarter: 2022Q2

REPORT INFORMATION
  Report Type: Report from Study
  Country: US (occurrence: US)
  Receive Date: 20200814
  Receipt Date: 20220512
  Transmission Date: 20220721
  Serious: No
  Sender: FDA-Public Use
  Company Number: US-TEVA-2020-US-1164395

PATIENT
  Sex: Female

DRUGS (1)
  1. ACTIQ [Suspect]
     Active Substance: FENTANYL CITRATE
     Indication: Breakthrough pain
     Route: 065
     Dates: start: 2012

REACTIONS (4)
  - Adverse event [Unknown]
  - Drug ineffective [Unknown]
  - Therapy interrupted [Unknown]
  - Product availability issue [Unknown]
